FAERS Safety Report 7767307-1 (Version None)
Quarter: 2011Q3

REPORT INFORMATION
  Report Type: 
  Country: None (occurrence: None)
  Receive Date: 20110922
  Receipt Date: 20110111
  Transmission Date: 20111222
  Serious: No
  Sender: FDA-Public Use
  Company Number: US-ASTRAZENECA-2011SE02211

PATIENT
  Sex: Female

DRUGS (3)
  1. LITHIUM CARBONATE [Concomitant]
  2. SEROQUEL [Suspect]
     Route: 048
  3. LAMICTAL [Concomitant]

REACTIONS (4)
  - GENERAL PHYSICAL CONDITION ABNORMAL [None]
  - MENTAL STATUS CHANGES [None]
  - IMPAIRED WORK ABILITY [None]
  - DISABILITY [None]
